FAERS Safety Report 19223010 (Version 1)
Quarter: 2021Q2

REPORT INFORMATION
  Report Type: Spontaneous
  Country: US (occurrence: US)
  Receive Date: 20210505
  Receipt Date: 20210505
  Transmission Date: 20210717
  Serious: Yes (Other)
  Sender: FDA-Public Use
  Company Number: US-ELI_LILLY_AND_COMPANY-US202104012087

PATIENT
  Age: 76 Year
  Sex: Female

DRUGS (1)
  1. TRULICITY [Suspect]
     Active Substance: DULAGLUTIDE
     Indication: TYPE 2 DIABETES MELLITUS
     Dosage: UNK UNK, UNKNOWN
     Route: 065
     Dates: start: 20210412

REACTIONS (10)
  - Feeling abnormal [Unknown]
  - Vomiting [Unknown]
  - Cardiac discomfort [Not Recovered/Not Resolved]
  - Intracranial aneurysm [Unknown]
  - Nausea [Not Recovered/Not Resolved]
  - Blood pressure increased [Unknown]
  - Pyrexia [Unknown]
  - Malaise [Unknown]
  - Blood glucose increased [Unknown]
  - Nervousness [Unknown]

NARRATIVE: CASE EVENT DATE: 202104
